FAERS Safety Report 7744036-1 (Version None)
Quarter: 2011Q3

REPORT INFORMATION
  Report Type: 
  Country: None (occurrence: None)
  Receive Date: 20110819
  Receipt Date: 20110628
  Transmission Date: 20111222
  Serious: No
  Sender: FDA-Public Use
  Company Number: 035952

PATIENT
  Sex: Female

DRUGS (2)
  1. LACOSAMIDE [Suspect]
     Indication: CONVULSION
     Dosage: 100 MG QD ORAL
     Route: 048
     Dates: start: 20100422
  2. LAMICTAL [Concomitant]

REACTIONS (1)
  - RESTLESS LEGS SYNDROME [None]
